FAERS Safety Report 17988372 (Version 1)
Quarter: 2020Q3

REPORT INFORMATION
  Report Type: Spontaneous
  Country: US (occurrence: US)
  Receive Date: 20200706
  Receipt Date: 20200706
  Transmission Date: 20201103
  Serious: Yes (Hospitalization)
  Sender: FDA-Public Use
  Company Number: None

PATIENT
  Sex: Female

DRUGS (3)
  1. TACROLIMUS. [Suspect]
     Active Substance: TACROLIMUS
  2. TENOFOVIR 300MG [Suspect]
     Active Substance: TENOFOVIR DISOPROXIL
     Indication: HEPATITIS B
     Route: 048
     Dates: start: 20200523
  3. MYCOPHENOLATE, 500MG [Suspect]
     Active Substance: MYCOPHENOLIC ACID
     Route: 048
     Dates: start: 20200323

REACTIONS (1)
  - Nasopharyngitis [None]
